FAERS Safety Report 6265765-5 (Version None)
Quarter: 2009Q3

REPORT INFORMATION
  Report Type: 
  Country: None (occurrence: None)
  Receive Date: 20090709
  Receipt Date: 20090709
  Transmission Date: 20100115
  Serious: No
  Sender: FDA-Public Use
  Company Number: None

PATIENT
  Sex: Male
  Weight: 145.7861 kg

DRUGS (1)
  1. FENTANYL [Suspect]
     Indication: ABDOMINAL PAIN
     Dosage: 5MG PATCH EVERY OTHER DAY TOP
     Route: 061
     Dates: start: 20080821, end: 20090708

REACTIONS (2)
  - DRUG INEFFECTIVE [None]
  - PRODUCT SUBSTITUTION ISSUE [None]
